FAERS Safety Report 12626985 (Version 2)
Quarter: 2016Q3

REPORT INFORMATION
  Report Type: Spontaneous
  Country: MX (occurrence: MX)
  Receive Date: 20160805
  Receipt Date: 20160810
  Transmission Date: 20161109
  Serious: Yes (Death, Other)
  Sender: FDA-Public Use
  Company Number: MX-UCBSA-2016029101

PATIENT
  Sex: Female
  Weight: 11 kg

DRUGS (5)
  1. PHENOBARBITAL. [Concomitant]
     Active Substance: PHENOBARBITAL
     Indication: SEIZURE
     Dosage: 2.5 ML, 3X/DAY (TID)
     Dates: start: 200912
  2. VIMPAT [Suspect]
     Active Substance: LACOSAMIDE
     Indication: HOLOPROSENCEPHALY
     Dosage: 25 MG, 2X/DAY (BID)
     Route: 048
     Dates: start: 2011
  3. KEPPRA [Suspect]
     Active Substance: LEVETIRACETAM
     Indication: HOLOPROSENCEPHALY
     Dosage: 2 ML, 3X/DAY (TID)
     Route: 048
     Dates: start: 2009, end: 2009
  4. KEPPRA [Suspect]
     Active Substance: LEVETIRACETAM
     Indication: OFF LABEL USE
  5. CLONAZEPAM. [Concomitant]
     Active Substance: CLONAZEPAM
     Indication: SLEEP DISORDER
     Dosage: 5 GTT, 3X/DAY (TID)
     Dates: start: 2011

REACTIONS (3)
  - Off label use [Unknown]
  - Drug ineffective [Unknown]
  - Seizure [Unknown]

NARRATIVE: CASE EVENT DATE: 2009
